FAERS Safety Report 4932377-2 (Version None)
Quarter: 2006Q1

REPORT INFORMATION
  Report Type: 
  Country: None (occurrence: None)
  Receive Date: 20060301
  Receipt Date: 20060216
  Transmission Date: 20060701
  Serious: Yes (Other)
  Sender: FDA-Public Use
  Company Number: SUS1-2005-00687

PATIENT
  Age: 34 Year
  Sex: Male

DRUGS (9)
  1. PENTASA [Suspect]
     Indication: COLITIS ULCERATIVE
     Dosage: 500 MG, 3X/DAY:TID, ORAL
     Route: 048
     Dates: start: 20050602
  2. COLONEL (POLYCARBOPHIL CALCIUM) [Suspect]
     Indication: COLITIS ULCERATIVE
     Dosage: ORAL
     Route: 048
     Dates: start: 20020330
  3. BETAMETHASONE VALERATE (BETAMETHASONE VALERATE) [Concomitant]
  4. DIAZEPAM [Concomitant]
  5. FLUVOXAMINE MALEATE [Concomitant]
  6. ESTAZOLAM [Concomitant]
  7. IMIPRAMINE [Concomitant]
  8. PIMOZIDE (PIMOZIDE) [Concomitant]
  9. GENTAMICIN SULFATE [Concomitant]

REACTIONS (1)
  - HEADACHE [None]
